FAERS Safety Report 5377216-3 (Version None)
Quarter: 2007Q2

REPORT INFORMATION
  Report Type: 
  Country: None (occurrence: None)
  Receive Date: 20070629
  Receipt Date: 20070629
  Transmission Date: 20071010
  Serious: Yes (Other)
  Sender: FDA-Public Use
  Company Number: None

PATIENT
  Age: 67 Year
  Sex: Male

DRUGS (1)
  1. PHOSPHOSODA GINGER LEMON [Suspect]
     Indication: COLONOSCOPY
     Dosage: X2;PO
     Route: 048
     Dates: start: 20040701

REACTIONS (7)
  - DIABETES MELLITUS [None]
  - DIABETIC RETINOPATHY [None]
  - DIZZINESS [None]
  - GLOMERULONEPHRITIS MEMBRANOUS [None]
  - HYPERTENSION [None]
  - RENAL FAILURE [None]
  - VISION BLURRED [None]
